FAERS Safety Report 9531230 (Version 1)
Quarter: 2013Q3

REPORT INFORMATION
  Report Type: Spontaneous
  Country: US (occurrence: None)
  Receive Date: 20130916
  Receipt Date: 20130916
  Transmission Date: 20140515
  Serious: Yes (Other)
  Sender: FDA-Public Use
  Company Number: None

PATIENT
  Sex: 0

DRUGS (1)
  1. ROCEPHIN [Suspect]
     Indication: EAR PAIN
     Dates: start: 20120810, end: 20120810

REACTIONS (6)
  - Injection site hypoaesthesia [None]
  - Injection site reaction [None]
  - Paraesthesia [None]
  - Educational problem [None]
  - Gait disturbance [None]
  - Stress [None]
